FAERS Safety Report 6652134-9 (Version None)
Quarter: 2010Q1

REPORT INFORMATION
  Report Type: 
  Country: None (occurrence: None)
  Receive Date: 20100325
  Receipt Date: 20100318
  Transmission Date: 20100710
  Serious: Yes (Hospitalization)
  Sender: FDA-Public Use
  Company Number: US-AMGEN-QUU375783

PATIENT
  Sex: Female
  Weight: 91.3 kg

DRUGS (6)
  1. NEULASTA [Suspect]
     Indication: CHEMOTHERAPY
     Route: 058
     Dates: start: 20091113, end: 20091113
  2. ADRIAMYCIN PFS [Concomitant]
     Dates: start: 20091112, end: 20100128
  3. CYTOXAN [Concomitant]
     Dates: start: 20091112, end: 20100128
  4. ALOXI [Concomitant]
     Dates: start: 20091112, end: 20100128
  5. EMEND [Concomitant]
     Dates: start: 20091112, end: 20100128
  6. DECADRON [Concomitant]
     Dates: start: 20091112, end: 20100225

REACTIONS (3)
  - CHEST PAIN [None]
  - DYSPNOEA [None]
  - HEADACHE [None]
